FAERS Safety Report 23367203 (Version 4)
Quarter: 2024Q4

REPORT INFORMATION
  Report Type: Spontaneous
  Country: JP (occurrence: JP)
  Receive Date: 20240104
  Receipt Date: 20241111
  Transmission Date: 20250115
  Serious: Yes (Other)
  Sender: PFIZER
  Company Number: JP-PFIZER INC-202300453999

PATIENT
  Age: 61 Year
  Sex: Male
  Weight: 95 kg

DRUGS (15)
  1. LITFULO [Suspect]
     Active Substance: RITLECITINIB TOSYLATE
     Indication: Alopecia areata
     Dosage: 50 MG, 1X/DAY
     Route: 048
     Dates: start: 20231206, end: 20231220
  2. VONOPRAZAN FUMARATE [Concomitant]
     Active Substance: VONOPRAZAN FUMARATE
     Indication: Gastric ulcer
     Dosage: 20 MG, 1X/DAY
     Route: 048
  3. JARDIANCE [Concomitant]
     Active Substance: EMPAGLIFLOZIN
     Indication: Diabetes mellitus
     Dosage: 25 MG, 1X/DAY
     Route: 048
  4. METFORMIN HYDROCHLORIDE [Concomitant]
     Active Substance: METFORMIN HYDROCHLORIDE
     Indication: Diabetes mellitus
     Dosage: 500 MG, 3X/DAY
     Route: 048
  5. XULTOPHY 100/3.6 [Concomitant]
     Active Substance: INSULIN DEGLUDEC\LIRAGLUTIDE
     Indication: Diabetes mellitus
     Dosage: 24 DF, 1X/DAY
     Route: 058
  6. ASPIRIN [Concomitant]
     Active Substance: ASPIRIN
     Indication: Angina pectoris
     Dosage: 100 MG, 1X/DAY
     Route: 048
  7. EZETIMIBE\ROSUVASTATIN [Concomitant]
     Active Substance: EZETIMIBE\ROSUVASTATIN
     Indication: Hyperlipidaemia
     Dosage: 1 DF, 1X/DAY
     Route: 048
  8. AZILSARTAN KAMEDOXOMIL [Concomitant]
     Active Substance: AZILSARTAN KAMEDOXOMIL
     Indication: Hypertension
     Dosage: 20 MG, 1X/DAY
     Route: 048
  9. NIFEDIPINE [Concomitant]
     Active Substance: NIFEDIPINE
     Indication: Hypertension
     Dosage: 10 MG, 3X/DAY
     Route: 048
  10. VIBEGRON [Concomitant]
     Active Substance: VIBEGRON
     Indication: Benign prostatic hyperplasia
     Dosage: 50 MG, 1X/DAY
     Route: 048
  11. TAMSULOSIN HYDROCHLORIDE [Concomitant]
     Active Substance: TAMSULOSIN HYDROCHLORIDE
     Indication: Benign prostatic hyperplasia
     Dosage: 2 MG, 1X/DAY
     Route: 048
  12. LEXAPRO [Concomitant]
     Active Substance: ESCITALOPRAM OXALATE
     Indication: Autonomic nervous system imbalance
     Dosage: 20 MG, 1X/DAY
     Route: 048
  13. SOLANAX [Concomitant]
     Active Substance: ALPRAZOLAM
     Indication: Autonomic nervous system imbalance
     Dosage: 0.4 MG, 2X/DAY
     Route: 048
  14. ZOLPIDEM TARTRATE [Concomitant]
     Active Substance: ZOLPIDEM TARTRATE
     Indication: Autonomic nervous system imbalance
     Dosage: 10 MG, 1X/DAY
     Route: 048
  15. DAYVIGO [Concomitant]
     Active Substance: LEMBOREXANT
     Indication: Autonomic nervous system imbalance
     Dosage: 5 MG, 1X/DAY
     Route: 048

REACTIONS (2)
  - Lipids increased [Recovering/Resolving]
  - Blood glucose increased [Recovering/Resolving]

NARRATIVE: CASE EVENT DATE: 20231220
